FAERS Safety Report 4752754-2 (Version None)
Quarter: 2005Q3

REPORT INFORMATION
  Report Type: 
  Country: None (occurrence: None)
  Receive Date: 20050823
  Receipt Date: 20050804
  Transmission Date: 20060218
  Serious: Yes (Other)
  Sender: FDA-Public Use
  Company Number: USA050392623

PATIENT
  Age: 51 Year
  Sex: Female
  Weight: 54 kg

DRUGS (17)
  1. XIGRIS [Suspect]
     Indication: SEPSIS
     Dosage: 24 UG/KR/HR
     Dates: start: 20050304, end: 20050307
  2. LASIX [Concomitant]
  3. ZOFRAN (ONDASETRON HYDROCHLORIDE0 [Concomitant]
  4. PERCOCET [Concomitant]
  5. PEPCID [Concomitant]
  6. AMPICILLIN [Concomitant]
  7. AMMONIUM BICARBONATE [Concomitant]
  8. PROTONIX [Concomitant]
  9. ATIVAN [Concomitant]
  10. MORPHINE SULFATE [Concomitant]
  11. NOREPINEPHRINE [Concomitant]
  12. DEMEROL [Concomitant]
  13. VISTARIL (HYDROXYZINE EMBOLATE) [Concomitant]
  14. DILAUDID [Concomitant]
  15. TYLENOL [Concomitant]
  16. LORAZEPAM [Concomitant]
  17. PROPOFOL [Concomitant]

REACTIONS (4)
  - ALANINE AMINOTRANSFERASE INCREASED [None]
  - ASPARTATE AMINOTRANSFERASE INCREASED [None]
  - BLOOD BILIRUBIN INCREASED [None]
  - PROTEIN TOTAL DECREASED [None]
